FAERS Safety Report 17641486 (Version 2)
Quarter: 2020Q2

REPORT INFORMATION
  Report Type: Spontaneous
  Country: US (occurrence: US)
  Receive Date: 20200408
  Receipt Date: 20200413
  Transmission Date: 20200713
  Serious: No
  Sender: FDA-Public Use
  Company Number: US-009507513-2004USA002325

PATIENT
  Sex: Female

DRUGS (4)
  1. LENVATINIB MESYLATE [Suspect]
     Active Substance: LENVATINIB MESYLATE
     Indication: ENDOMETRIAL NEOPLASM
     Dosage: STRENGTH: 10 MILLIGRAM/ 4 MILLIGRAM, 14 MILLIGRAM, DAILY
     Route: 048
     Dates: start: 20191206
  2. XARELTO [Suspect]
     Active Substance: RIVAROXABAN
     Dosage: UNK
  3. VITAMIN D (UNSPECIFIED) [Suspect]
     Active Substance: VITAMIN D NOS
     Dosage: VITAMIN-D 400 (UNITS NOT PROVIDED)
  4. KEYTRUDA [Suspect]
     Active Substance: PEMBROLIZUMAB
     Dosage: UNK

REACTIONS (1)
  - Pain in extremity [Unknown]
